FAERS Safety Report 11485587 (Version 1)
Quarter: 2015Q3

REPORT INFORMATION
  Report Type: Spontaneous
  Country: US (occurrence: US)
  Receive Date: 20150909
  Receipt Date: 20150909
  Transmission Date: 20151125
  Serious: No
  Sender: FDA-Public Use
  Company Number: US-JAZZ-2014-US-017271

PATIENT
  Age: 28 Year
  Sex: Female
  Weight: 90.7 kg

DRUGS (5)
  1. NUVIGIL [Concomitant]
     Active Substance: ARMODAFINIL
     Indication: NARCOLEPSY
     Dosage: UNK
     Route: 048
  2. XYREM [Suspect]
     Active Substance: SODIUM OXYBATE
     Dosage: 0.5 G, FIRST DOSE
     Route: 048
     Dates: start: 20141228
  3. XYREM [Suspect]
     Active Substance: SODIUM OXYBATE
     Dosage: 1 G, SECOND DOSE
     Route: 048
     Dates: start: 20141228
  4. XYREM [Suspect]
     Active Substance: SODIUM OXYBATE
     Indication: NARCOLEPSY
     Dosage: 0.5 G, FIRST DOSE
     Route: 048
     Dates: start: 201412, end: 20141223
  5. XYREM [Suspect]
     Active Substance: SODIUM OXYBATE
     Indication: CATAPLEXY
     Dosage: 1 G, SECOND DOSE
     Route: 048
     Dates: start: 201412, end: 20141223

REACTIONS (5)
  - Unevaluable event [Recovering/Resolving]
  - Fatigue [Recovering/Resolving]
  - Rhinovirus infection [Recovering/Resolving]
  - Drug dose omission [Unknown]
  - Nasopharyngitis [Recovering/Resolving]

NARRATIVE: CASE EVENT DATE: 20141224
